FAERS Safety Report 10166793 (Version 1)
Quarter: 2014Q2

REPORT INFORMATION
  Report Type: Spontaneous
  Country: ES (occurrence: ES)
  Receive Date: 20140512
  Receipt Date: 20140512
  Transmission Date: 20141212
  Serious: Yes (Other)
  Sender: FDA-Public Use
  Company Number: ES-BAYER-2014-069828

PATIENT
  Age: 36 Year
  Sex: Male

DRUGS (2)
  1. ULTRAVIST [Suspect]
     Indication: COMPUTERISED TOMOGRAM
     Dosage: 120 ML, UNK
     Route: 042
  2. ULTRAVIST [Suspect]
     Indication: FALL

REACTIONS (3)
  - Infusion site extravasation [Recovered/Resolved]
  - Peripheral swelling [Recovered/Resolved with Sequelae]
  - Poor peripheral circulation [Recovered/Resolved]
